FAERS Safety Report 8399109-X (Version None)
Quarter: 2012Q2

REPORT INFORMATION
  Report Type: 
  Country: None (occurrence: None)
  Receive Date: 20120531
  Receipt Date: 20110516
  Transmission Date: 20120825
  Serious: No
  Sender: FDA-Public Use
  Company Number: US-NOVEN-11US002463

PATIENT

DRUGS (9)
  1. INTUNIV [Concomitant]
     Indication: BIPOLAR DISORDER
     Dosage: 4 MG, EVENING
     Route: 048
     Dates: start: 20100601
  2. FLOVENT [Concomitant]
     Indication: ASTHMA
     Dosage: 2 PUFFS IN AM AND PM
     Route: 055
     Dates: start: 20110101
  3. MIRALAX [Concomitant]
     Indication: CONSTIPATION
     Dosage: UNK
     Route: 048
  4. DAYTRANA [Suspect]
     Indication: ATTENTION DEFICIT/HYPERACTIVITY DISORDER
     Dosage: 10 MG, UNK
     Route: 062
     Dates: start: 20110514
  5. FLONASE [Concomitant]
     Indication: SEASONAL ALLERGY
     Dosage: UNK
     Route: 045
     Dates: start: 20100201
  6. INTUNIV [Concomitant]
     Indication: ATTENTION DEFICIT/HYPERACTIVITY DISORDER
  7. RISPERDON [Concomitant]
     Indication: BIPOLAR DISORDER
     Dosage: 1 MG IN AM, 2 MG AT NIGHT
     Route: 048
     Dates: start: 20110401
  8. ZYRTEC [Concomitant]
     Indication: SEASONAL ALLERGY
     Dosage: 7.5 MG, UNK
     Route: 048
     Dates: start: 20080101
  9. XOPENEX [Concomitant]
     Indication: ASTHMA
     Dosage: 4 TO 6 TIMES PER DAY
     Route: 055
     Dates: start: 20110101

REACTIONS (6)
  - WRONG TECHNIQUE IN DRUG USAGE PROCESS [None]
  - DRUG ADMINISTRATION ERROR [None]
  - PRODUCT QUALITY ISSUE [None]
  - DRUG ADMINISTERED AT INAPPROPRIATE SITE [None]
  - DRUG INEFFECTIVE [None]
  - OFF LABEL USE [None]
